FAERS Safety Report 15265474 (Version 2)
Quarter: 2018Q4

REPORT INFORMATION
  Report Type: Spontaneous
  Country: JP (occurrence: JP)
  Receive Date: 20180810
  Receipt Date: 20181005
  Transmission Date: 20190204
  Serious: Yes (Other)
  Sender: FDA-Public Use
  Company Number: JP-SUNOVION-2018SUN003066

PATIENT
  Age: 39 Year
  Sex: Male

DRUGS (3)
  1. LUNESTA [Suspect]
     Active Substance: ESZOPICLONE
     Dosage: 3 MG, QD
     Route: 048
     Dates: start: 20160602
  2. SUVOREXANT. [Suspect]
     Active Substance: SUVOREXANT
     Indication: INSOMNIA
     Dosage: DOSE UNKNOWN
     Route: 048
     Dates: start: 20160420
  3. LUNESTA [Suspect]
     Active Substance: ESZOPICLONE
     Indication: INSOMNIA
     Dosage: 2 MG, QD
     Route: 048
     Dates: start: 20160301, end: 20160601

REACTIONS (1)
  - Anterograde amnesia [Unknown]
